FAERS Safety Report 7744719-3 (Version None)
Quarter: 2011Q3

REPORT INFORMATION
  Report Type: 
  Country: None (occurrence: None)
  Receive Date: 20110912
  Receipt Date: 20110906
  Transmission Date: 20111222
  Serious: Yes (Life-Threatening, Hospitalization, Other)
  Sender: FDA-Public Use
  Company Number: US-ASTRAZENECA-2011SE26247

PATIENT
  Age: 54 Year
  Sex: Male
  Weight: 141.5 kg

DRUGS (18)
  1. VYTORIN [Concomitant]
     Dosage: 10/40
  2. ULTRACET [Concomitant]
  3. ASPIRIN [Concomitant]
  4. NIASPAN [Concomitant]
     Indication: HYPERLIPIDAEMIA
  5. LORATADINE [Concomitant]
  6. STARLIX [Concomitant]
  7. LOTRISONE [Concomitant]
  8. PULMICORT FLEXHALER [Suspect]
     Dosage: AS NEEDED
     Route: 055
  9. LISINOPRIL [Concomitant]
  10. FLONASE [Concomitant]
     Dosage: DAILY
  11. NOVOLIN R [Concomitant]
     Dosage: 15 UNITS IN THE AM 15 UNITS AT NOON, 15 UNITS PM AND 15 UNITS HS
  12. PLAVIX [Concomitant]
  13. ACTOS [Concomitant]
     Indication: TYPE 2 DIABETES MELLITUS
  14. BYETTA [Concomitant]
     Dosage: 5 UNITS QPM
  15. LANTUS [Concomitant]
     Indication: TYPE 2 DIABETES MELLITUS
     Dosage: 50 UNITS AM AND 23 UNITS PM
  16. NIFEDIPINE [Concomitant]
     Dosage: Q12 H
  17. REGLAN [Concomitant]
  18. TRAVATAN [Concomitant]

REACTIONS (5)
  - DYSPNOEA [None]
  - ACUTE MYOCARDIAL INFARCTION [None]
  - BRONCHITIS CHRONIC [None]
  - BACK PAIN [None]
  - CARDIOMEGALY [None]
